FAERS Safety Report 18580970 (Version 1)
Quarter: 2020Q4

REPORT INFORMATION
  Report Type: Report from Study
  Country: US (occurrence: US)
  Receive Date: 20201204
  Receipt Date: 20201204
  Transmission Date: 20210114
  Serious: Yes (Hospitalization, Other)
  Sender: FDA-Public Use
  Company Number: US-GILEAD-2020-0507289

PATIENT
  Sex: Male

DRUGS (11)
  1. SODIUM CHLORIDE. [Concomitant]
     Active Substance: SODIUM CHLORIDE
  2. SINGULAIR [Concomitant]
     Active Substance: MONTELUKAST SODIUM
  3. CREON [Concomitant]
     Active Substance: PANCRELIPASE AMYLASE\PANCRELIPASE LIPASE\PANCRELIPASE PROTEASE
  4. AZTREONAM LYSINE [Suspect]
     Active Substance: AZTREONAM LYSINE
     Indication: CYSTIC FIBROSIS
     Dosage: 75 MG, TID, 28 DAYS ON AND 28 DAYS OFF
     Route: 055
  5. FLOVENT [Concomitant]
     Active Substance: FLUTICASONE PROPIONATE
  6. ALBUTEROL SULFATE. [Concomitant]
     Active Substance: ALBUTEROL SULFATE
  7. MIRALAX [Concomitant]
     Active Substance: POLYETHYLENE GLYCOL 3350
  8. SYMDEKO [Concomitant]
     Active Substance: IVACAFTOR\TEZACAFTOR
  9. IPRATROPIUM [Concomitant]
     Active Substance: IPRATROPIUM
  10. CYPROHEPTADINE. [Concomitant]
     Active Substance: CYPROHEPTADINE
  11. DUONEB [Concomitant]
     Active Substance: ALBUTEROL SULFATE\IPRATROPIUM BROMIDE

REACTIONS (1)
  - Cystic fibrosis [Unknown]
